FAERS Safety Report 4448551-8 (Version None)
Quarter: 2004Q3

REPORT INFORMATION
  Report Type: 
  Country: None (occurrence: None)
  Receive Date: 20040909
  Receipt Date: 20040824
  Transmission Date: 20050211
  Serious: Yes (Other)
  Sender: FDA-Public Use
  Company Number: FR_040804646

PATIENT
  Sex: Female

DRUGS (2)
  1. EVISTA [Suspect]
     Indication: OSTEOPOROSIS PROPHYLAXIS
     Dosage: 60 MG/1 DAY
     Dates: start: 20011201, end: 20040201
  2. AROMASIN [Concomitant]

REACTIONS (4)
  - BONE PAIN [None]
  - BREAST CANCER RECURRENT [None]
  - BREAST PAIN [None]
  - THERAPY NON-RESPONDER [None]
